FAERS Safety Report 25984636 (Version 2)
Quarter: 2025Q4

REPORT INFORMATION
  Report Type: Report from Study
  Country: EU (occurrence: EU)
  Receive Date: 20251031
  Receipt Date: 20251124
  Transmission Date: 20260117
  Serious: Yes (Hospitalization)
  Sender: ABBVIE
  Company Number: EU-ABBVIE-6523089

PATIENT
  Age: 82 Year
  Sex: Male
  Weight: 95 kg

DRUGS (5)
  1. FOSCARBIDOPA\FOSLEVODOPA [Suspect]
     Active Substance: FOSCARBIDOPA\FOSLEVODOPA
     Indication: Parkinson^s disease
     Dosage: LOADING DOSE DRUG: 10 ML?CONTINUOUS RATE PUMP SETTING BASE 0.26 ML/H?CONTINUOUS RATE PUMP SETTING...
     Route: 058
     Dates: start: 20241021, end: 20241113
  2. FOSCARBIDOPA\FOSLEVODOPA [Suspect]
     Active Substance: FOSCARBIDOPA\FOSLEVODOPA
     Dosage: LOADING DOSE DRUG: 10 ML?CONTINUOUS RATE PUMP SETTING BASE 0.28 ML/H?CONTINUOUS RATE PUMP SETTING...
     Route: 058
     Dates: start: 20241113, end: 20241203
  3. FOSCARBIDOPA\FOSLEVODOPA [Suspect]
     Active Substance: FOSCARBIDOPA\FOSLEVODOPA
     Dosage: LOADING DOSE DRUG: 10 ML?CONTINUOUS RATE PUMP SETTING BASE 0.31 ML/H?CONTINUOUS RATE PUMP SETTING...
     Route: 058
     Dates: start: 20241203, end: 20250129
  4. FOSCARBIDOPA\FOSLEVODOPA [Suspect]
     Active Substance: FOSCARBIDOPA\FOSLEVODOPA
     Route: 058
     Dates: start: 20250129, end: 20250505
  5. BENSERAZIDE HYDROCHLORIDE\LEVODOPA [Concomitant]
     Active Substance: BENSERAZIDE HYDROCHLORIDE\LEVODOPA
     Indication: Parkinson^s disease
     Dosage: TIME INTERVAL: 0.33333333 DAYS
     Route: 048
     Dates: start: 20251024

REACTIONS (2)
  - Hallucination [Recovered/Resolved]
  - Fall [Recovered/Resolved]

NARRATIVE: CASE EVENT DATE: 20251024
